FAERS Safety Report 4664519-0 (Version None)
Quarter: 2005Q2

REPORT INFORMATION
  Report Type: 
  Country: None (occurrence: None)
  Receive Date: 20050518
  Receipt Date: 20050509
  Transmission Date: 20051028
  Serious: Yes (Hospitalization)
  Sender: FDA-Public Use
  Company Number: DE-BOEHRINGER INGELHEIM PHARMACEUTICALS, INC.-2005-DE-01746DE

PATIENT
  Sex: Female
  Weight: 65 kg

DRUGS (2)
  1. SPIRIVA [Suspect]
     Route: 048
  2. TRIMEBUTIN [Suspect]
     Route: 048

REACTIONS (4)
  - ACCIDENTAL DRUG INTAKE BY CHILD [None]
  - ACCIDENTAL EXPOSURE [None]
  - DIZZINESS [None]
  - GAIT DISTURBANCE [None]
